FAERS Safety Report 8823741 (Version 1)
Quarter: 2012Q4

REPORT INFORMATION
  Report Type: 
  Country: US (occurrence: US)
  Receive Date: 20121003
  Receipt Date: 20121003
  Transmission Date: 20130627
  Serious: Yes (Disabling)
  Sender: FDA-Public Use
  Company Number: CHPA2012US020495

PATIENT
  Sex: Female

DRUGS (1)
  1. KERI ORIGINAL [Suspect]
     Indication: DRY SKIN
     Dosage: Unk, Unk
     Route: 061
     Dates: start: 1985

REACTIONS (2)
  - Breast cancer [Recovered/Resolved]
  - Wheelchair user [Not Recovered/Not Resolved]
